FAERS Safety Report 7615752-7 (Version None)
Quarter: 2011Q3

REPORT INFORMATION
  Report Type: 
  Country: None (occurrence: None)
  Receive Date: 20110715
  Receipt Date: 20110715
  Transmission Date: 20111222
  Serious: Yes (Other)
  Sender: FDA-Public Use
  Company Number: None

PATIENT
  Age: 63 Year
  Sex: Male

DRUGS (4)
  1. DOCUSATE [Concomitant]
  2. AMITRIPTYLINE HCL [Concomitant]
  3. ALENDRONATE SODIUM [Concomitant]
  4. REVLIMID [Suspect]
     Indication: PROSTATE CANCER
     Dosage: REVLIMID 15 MG DAILY ORALLY
     Route: 048
     Dates: start: 20110224, end: 20110227

REACTIONS (2)
  - DECREASED ACTIVITY [None]
  - ASTHENIA [None]
